FAERS Safety Report 10483856 (Version 1)
Quarter: 2014Q3

REPORT INFORMATION
  Report Type: Spontaneous
  Country: BR (occurrence: BR)
  Receive Date: 20140930
  Receipt Date: 20140930
  Transmission Date: 20150326
  Serious: Yes (Other)
  Sender: FDA-Public Use
  Company Number: BR-TEVA-512411ISR

PATIENT
  Age: 71 Year
  Sex: Female

DRUGS (3)
  1. ALENIA 6/200MCG [Suspect]
     Active Substance: BUDESONIDE\FORMOTEROL FUMARATE
     Indication: CHRONIC OBSTRUCTIVE PULMONARY DISEASE
     Dosage: DAILY DOSE: 12/400MCG (1 INHALATION TWICE A DAY)
     Route: 055
  2. PHENOBARBITAL. [Concomitant]
     Active Substance: PHENOBARBITAL
     Indication: EPILEPSY
     Dosage: 200 MILLIGRAM DAILY;
     Route: 048
  3. CARBAMAZEPINE. [Suspect]
     Active Substance: CARBAMAZEPINE
     Indication: EPILEPSY
     Dosage: 800 MILLIGRAM DAILY;
     Route: 048

REACTIONS (1)
  - Catatonia [Not Recovered/Not Resolved]

NARRATIVE: CASE EVENT DATE: 20140917
